FAERS Safety Report 5144786-X (Version None)
Quarter: 2006Q4

REPORT INFORMATION
  Report Type: 
  Country: None (occurrence: None)
  Receive Date: 20061103
  Receipt Date: 20061103
  Transmission Date: 20070319
  Serious: Yes (Hospitalization)
  Sender: FDA-Public Use
  Company Number: None

PATIENT
  Sex: Female

DRUGS (1)
  1. CIPRO [Suspect]
     Indication: URINARY TRACT INFECTION
     Dosage: 500 MG BID PO
     Route: 048
     Dates: start: 20061023, end: 20061026

REACTIONS (5)
  - EYE SWELLING [None]
  - LIP SWELLING [None]
  - PRURITUS [None]
  - RASH [None]
  - SWELLING FACE [None]
